FAERS Safety Report 8615430-1 (Version None)
Quarter: 2012Q3

REPORT INFORMATION
  Report Type: 
  Country: None (occurrence: None)
  Receive Date: 20120823
  Receipt Date: 20120814
  Transmission Date: 20120928
  Serious: Yes (Hospitalization)
  Sender: FDA-Public Use
  Company Number: US-JNJFOC-20120712220

PATIENT
  Sex: Male
  Weight: 59.2 kg

DRUGS (5)
  1. HUMIRA [Concomitant]
     Dates: start: 20090917
  2. METHOTREXATE [Concomitant]
  3. INFLIXIMAB, RECOMBINANT [Suspect]
     Indication: CROHN'S DISEASE
     Route: 042
     Dates: start: 20081002, end: 20090521
  4. MELATONIN [Concomitant]
  5. SERTRALINE HYDROCHLORIDE [Concomitant]

REACTIONS (1)
  - INFLAMMATORY BOWEL DISEASE [None]
